FAERS Safety Report 6677497-X (Version None)
Quarter: 2010Q2

REPORT INFORMATION
  Report Type: 
  Country: None (occurrence: None)
  Receive Date: 20100412
  Receipt Date: 20100402
  Transmission Date: 20101027
  Serious: Yes (Hospitalization, Other)
  Sender: FDA-Public Use
  Company Number: B0646356A

PATIENT
  Age: 16 Year
  Sex: Male
  Weight: 91 kg

DRUGS (1)
  1. CLAVAMOX [Suspect]
     Indication: NASOPHARYNGITIS
     Dosage: 1G THREE TIMES PER DAY
     Route: 065

REACTIONS (7)
  - DRUG ERUPTION [None]
  - EPSTEIN-BARR VIRUS INFECTION [None]
  - HEPATIC ENZYME INCREASED [None]
  - RASH MACULAR [None]
  - RASH PRURITIC [None]
  - SKIN DISORDER [None]
  - SPLENOMEGALY [None]
